FAERS Safety Report 8614110-6 (Version None)
Quarter: 2012Q3

REPORT INFORMATION
  Report Type: 
  Country: None (occurrence: None)
  Receive Date: 20120823
  Receipt Date: 20120815
  Transmission Date: 20120928
  Serious: Yes (Hospitalization)
  Sender: FDA-Public Use
  Company Number: US-BAYER-2012-038998

PATIENT
  Sex: Female
  Weight: 81.633 kg

DRUGS (7)
  1. MOTRIN [Concomitant]
     Dosage: UNK UNK, PRN
  2. AVANDAMET [Concomitant]
     Indication: GLUCOSE TOLERANCE IMPAIRED
  3. YAZ [Suspect]
     Dosage: UNK
     Dates: start: 20040101, end: 20080101
  4. ACTUSS LINCTUS [Concomitant]
  5. ANTIBIOTICS [Concomitant]
     Dosage: UNK UNK, PRN
  6. ASPIRIN [Concomitant]
     Dosage: UNK UNK, QD
  7. VITAMINS NOS [Concomitant]

REACTIONS (5)
  - INJURY [None]
  - VOMITING [None]
  - CHOLELITHIASIS [None]
  - PAIN [None]
  - APHAGIA [None]
